FAERS Safety Report 8923905 (Version 1)
Quarter: 2012Q4

REPORT INFORMATION
  Report Type: 
  Country: US (occurrence: US)
  Receive Date: 20121126
  Receipt Date: 20121126
  Transmission Date: 20130627
  Serious: No
  Sender: FDA-Public Use
  Company Number: US-PFIZER INC-2012231247

PATIENT
  Sex: Male

DRUGS (4)
  1. INLYTA [Suspect]
     Indication: RENAL CELL CARCINOMA
     Dosage: UNK, 2x/day (BID)
     Route: 048
     Dates: start: 201205
  2. SUTENT [Suspect]
     Indication: RENAL CELL CARCINOMA
     Dosage: 50 mg, 1x/day
     Route: 048
     Dates: start: 201109
  3. SUTENT [Suspect]
     Dosage: 37.5 mg, UNK
     Route: 048
     Dates: end: 201205
  4. FLU [Concomitant]
     Dosage: UNK
     Dates: start: 20121005

REACTIONS (3)
  - Weight decreased [Recovering/Resolving]
  - Diarrhoea [Recovering/Resolving]
  - Nausea [Recovering/Resolving]
